FAERS Safety Report 23663203 (Version 1)
Quarter: 2024Q1

REPORT INFORMATION
  Report Type: Other
  Country: IT (occurrence: IT)
  Receive Date: 20240322
  Receipt Date: 20240322
  Transmission Date: 20240410
  Serious: Yes (Hospitalization)
  Sender: FDA-Public Use
  Company Number: None

PATIENT

DRUGS (2)
  1. CEFIDEROCOL SULFATE TOSYLATE [Suspect]
     Active Substance: CEFIDEROCOL SULFATE TOSYLATE
     Indication: Infection
     Dosage: 3 G, 1 PER 24 HOUR
     Route: 042
     Dates: start: 20240205, end: 20240216
  2. AMPICILLIN SODIUM\SULBACTAM SODIUM [Suspect]
     Active Substance: AMPICILLIN SODIUM\SULBACTAM SODIUM
     Indication: Infection
     Dosage: 3 G, 1 PER 24 HOUR
     Route: 042
     Dates: start: 20240205, end: 20240216

REACTIONS (1)
  - Dysentery [Recovering/Resolving]

NARRATIVE: CASE EVENT DATE: 20240205
